FAERS Safety Report 8080895-3 (Version None)
Quarter: 2012Q1

REPORT INFORMATION
  Report Type: 
  Country: None (occurrence: None)
  Receive Date: 20120130
  Receipt Date: 20120123
  Transmission Date: 20120608
  Serious: No
  Sender: FDA-Public Use
  Company Number: US-B.I. PHARMACEUTICALS,INC./RIDGEFIELD-2012-BP-01349BP

PATIENT
  Age: 83 Year
  Sex: Male

DRUGS (18)
  1. VITAMIN D [Concomitant]
     Indication: SUPPLEMENTATION THERAPY
  2. ALLOPURINOL [Concomitant]
     Indication: GOUT
  3. SPIRIVA [Suspect]
     Indication: CHRONIC OBSTRUCTIVE PULMONARY DISEASE
     Dosage: 18 MCG
     Route: 055
  4. LASIX [Concomitant]
     Indication: CARDIAC DISORDER
  5. COREG [Concomitant]
     Indication: HYPERTENSION
  6. ZOCOR [Concomitant]
     Indication: BLOOD CHOLESTEROL INCREASED
  7. ADVAIR DISKUS 100/50 [Concomitant]
     Indication: ASTHMA
  8. SPIRIVA [Suspect]
     Route: 048
     Dates: start: 20120123, end: 20120123
  9. METOLAZONE [Concomitant]
     Indication: OEDEMA
  10. SUCRALFATE [Concomitant]
  11. HYDRALAZINE HCL [Concomitant]
  12. ISOSORBIDE DINITRATE [Concomitant]
  13. PRILOSEC [Concomitant]
  14. ASPIRIN [Concomitant]
  15. PROCRIT [Concomitant]
     Indication: HAEMOGLOBIN DECREASED
  16. DIGOXIN [Concomitant]
     Indication: CARDIAC DISORDER
  17. SPIRONOLACTONE [Concomitant]
  18. PLAMETTO [Concomitant]

REACTIONS (1)
  - INCORRECT ROUTE OF DRUG ADMINISTRATION [None]
